FAERS Safety Report 9509004 (Version 1)
Quarter: 2013Q3

REPORT INFORMATION
  Report Type: Spontaneous
  Country: US (occurrence: US)
  Receive Date: 20130909
  Receipt Date: 20130909
  Transmission Date: 20140515
  Serious: No
  Sender: FDA-Public Use
  Company Number: US-BRISTOL-MYERS SQUIBB COMPANY-17384710

PATIENT
  Age: 25 Year
  Sex: Female

DRUGS (4)
  1. ABILIFY [Suspect]
     Indication: BIPOLAR DISORDER
     Dosage: DOSE DECREASED TO 25MG
  2. ABILIFY [Suspect]
     Indication: MAJOR DEPRESSION
     Dosage: DOSE DECREASED TO 25MG
  3. ZOLOFT [Concomitant]
     Dosage: 2 TABLETS IN THE MORNING
  4. LITHOBID [Concomitant]
     Dosage: 1 TABLET IN THE MORNING AND 2 TABLETS AT NIGHT

REACTIONS (1)
  - Blood prolactin increased [Not Recovered/Not Resolved]
